FAERS Safety Report 7455667-0 (Version None)
Quarter: 2011Q2

REPORT INFORMATION
  Report Type: 
  Country: None (occurrence: None)
  Receive Date: 20110503
  Receipt Date: 20110420
  Transmission Date: 20111010
  Serious: Yes (Death)
  Sender: FDA-Public Use
  Company Number: DE-ROCHE-773895

PATIENT
  Sex: Female
  Weight: 64 kg

DRUGS (2)
  1. BEVACIZUMAB [Suspect]
     Dosage: DOSE: 10
     Route: 065
     Dates: start: 20100625, end: 20101221
  2. XELODA [Concomitant]
     Dates: start: 20100625, end: 20101221

REACTIONS (1)
  - NO THERAPEUTIC RESPONSE [None]
